FAERS Safety Report 8603853 (Version 2)
Quarter: 2014Q2

REPORT INFORMATION
  Report Type: Report from Study
  Country: GB (occurrence: GB)
  Receive Date: 20120607
  Receipt Date: 20140619
  Transmission Date: 20141212
  Serious: Yes (Death, Life-Threatening, Hospitalization)
  Sender: FDA-Public Use
  Company Number: GB-BAXTER-2012BAX007495

PATIENT
  Age: 75 Year
  Sex: Male
  Weight: 59.3 kg

DRUGS (11)
  1. CYCLOPHOSPHAMIDE INJECTION 1G [Suspect]
     Indication: NON-HODGKIN^S LYMPHOMA
     Route: 042
     Dates: start: 20111122, end: 20120329
  2. INOTUZUMAB OZOGAMICIN [Suspect]
     Indication: NON-HODGKIN^S LYMPHOMA
     Route: 042
     Dates: start: 20111123, end: 20120330
  3. VINCRISTINE SULFATE [Suspect]
     Indication: NON-HODGKIN^S LYMPHOMA
     Route: 042
     Dates: start: 20111122, end: 20120329
  4. RITUXIMAB [Suspect]
     Indication: NON-HODGKIN^S LYMPHOMA
     Route: 042
     Dates: start: 20111122, end: 20120329
  5. PREDNISONE [Suspect]
     Indication: NON-HODGKIN^S LYMPHOMA
     Route: 048
     Dates: start: 20111122, end: 20120329
  6. LANSOPRAZOLE [Concomitant]
     Indication: PREMEDICATION
     Route: 042
     Dates: start: 20111115
  7. PARACETAMOL [Concomitant]
     Indication: PREMEDICATION
     Route: 048
     Dates: start: 20120329
  8. CHLORPHENAMINE [Concomitant]
     Indication: PREMEDICATION
     Route: 042
     Dates: start: 20120329, end: 20120329
  9. CHLORPHENAMINE [Concomitant]
     Route: 042
     Dates: start: 20120330
  10. ONDANSETRON [Concomitant]
     Indication: PREMEDICATION
     Route: 048
     Dates: start: 20120329
  11. METOCLOPRAMIDE [Concomitant]
     Indication: PROPHYLAXIS OF NAUSEA AND VOMITING
     Route: 048
     Dates: start: 20120329

REACTIONS (2)
  - Pneumonia [Fatal]
  - Neutrophil count decreased [Not Recovered/Not Resolved]
